FAERS Safety Report 15301242 (Version 1)
Quarter: 2018Q3

REPORT INFORMATION
  Report Type: Spontaneous
  Country: JP (occurrence: JP)
  Receive Date: 20180821
  Receipt Date: 20180821
  Transmission Date: 20181010
  Serious: Yes (Death, Hospitalization)
  Sender: FDA-Public Use
  Company Number: JP-BAYER-2018-151007

PATIENT

DRUGS (3)
  1. STIVARGA [Suspect]
     Active Substance: REGORAFENIB
     Indication: SMALL INTESTINE CARCINOMA
     Dosage: 80 MG, QD
     Route: 048
     Dates: start: 201806
  2. STIVARGA [Suspect]
     Active Substance: REGORAFENIB
     Indication: SMALL INTESTINE CARCINOMA
     Dosage: DAILY DOSE 80 MG
     Dates: end: 20180719
  3. STIVARGA [Suspect]
     Active Substance: REGORAFENIB
     Indication: SMALL INTESTINE CARCINOMA
     Dosage: DAILY DOSE 120 MG

REACTIONS (6)
  - Alanine aminotransferase increased [Fatal]
  - Blood bilirubin increased [Fatal]
  - General physical health deterioration [Fatal]
  - Hepatic function abnormal [Fatal]
  - Rash generalised [Recovering/Resolving]
  - Decreased appetite [Fatal]

NARRATIVE: CASE EVENT DATE: 201807
